FAERS Safety Report 9248582 (Version 1)
Quarter: 2013Q1

REPORT INFORMATION
  Report Type: Spontaneous
  Country: US (occurrence: None)
  Receive Date: 20130305
  Receipt Date: 20130305
  Transmission Date: 20140127
  Serious: Yes (Other)
  Sender: FDA-Public Use
  Company Number: 163-21880-12053379

PATIENT
  Age: 64 Year
  Sex: Female

DRUGS (5)
  1. REVLIMID [Suspect]
     Indication: PLASMA CELL MYELOMA
     Dosage: 25MG, 14 IN 14 D, PO
     Route: 048
     Dates: start: 201107
  2. FAMCICLOVIR (FAMCICLOVIR) [Concomitant]
  3. LORAZEPAM (LORAZEPAM) [Concomitant]
  4. PROCHLORPERAZINE (PROCHLORPERAZINE) [Concomitant]
  5. DAPSONE (DAPSONE) [Concomitant]

REACTIONS (3)
  - Pruritus [None]
  - Pruritus [None]
  - Rash [None]
